FAERS Safety Report 4342442-9 (Version None)
Quarter: 2004Q2

REPORT INFORMATION
  Report Type: 
  Country: None (occurrence: None)
  Receive Date: 20040416
  Receipt Date: 20040401
  Transmission Date: 20050107
  Serious: Yes (Hospitalization)
  Sender: FDA-Public Use
  Company Number: RENA-10887

PATIENT
  Age: 67 Year
  Sex: Male
  Weight: 62.5 kg

DRUGS (13)
  1. RENAGEL [Suspect]
     Indication: HYPERPHOSPHATAEMIA
     Dosage: 1.5 G QID PO
     Route: 048
     Dates: start: 20031201, end: 20040116
  2. BENIDIPINE HYDROCHLORIDE [Concomitant]
  3. ALLOPURINOL TAB [Concomitant]
  4. ATORVASTATIN [Concomitant]
  5. CLOSTRIDUIUM BUTRYCIUM [Concomitant]
  6. SENNOSIDE A+B [Concomitant]
  7. FUROSEMIDE [Concomitant]
  8. BACTERIA NOS [Concomitant]
  9. BROMPERIDOL LACTATE [Concomitant]
  10. BROTIZOLAM [Concomitant]
  11. CHLORPROMAZINE [Concomitant]
  12. PROMETHAZINE HCL [Concomitant]
  13. PEROSPIRONE HYDROCHLORIDE [Concomitant]

REACTIONS (4)
  - DIVERTICULITIS [None]
  - ILEUS [None]
  - INTESTINAL PERFORATION [None]
  - MENTAL IMPAIRMENT [None]
